FAERS Safety Report 7639116 (Version 2)
Quarter: 2013Q3

REPORT INFORMATION
  Report Type: Spontaneous
  Country: US (occurrence: US)
  Receive Date: 20101025
  Receipt Date: 20130729
  Transmission Date: 20140515
  Serious: Yes (Other)
  Sender: FDA-Public Use
  Company Number: US-ROCHE-674702

PATIENT
  Age: 28 Year
  Sex: Female
  Weight: 56.7 kg

DRUGS (7)
  1. ACCUTANE [Suspect]
     Indication: ACNE
     Route: 048
     Dates: start: 19960523, end: 19961023
  2. ACCUTANE [Suspect]
     Route: 048
  3. ACCUTANE [Suspect]
     Dosage: DOSE INCREASED
     Route: 048
     Dates: start: 19970529, end: 19970802
  4. ACCUTANE [Suspect]
     Route: 048
     Dates: start: 19971211, end: 19980516
  5. ACCUTANE [Suspect]
     Route: 048
     Dates: start: 19990720, end: 20000111
  6. VALTREX [Concomitant]
  7. XANAX [Concomitant]

REACTIONS (21)
  - Colitis ulcerative [Unknown]
  - Inflammatory bowel disease [Unknown]
  - Suicidal ideation [Unknown]
  - Arthritis [Unknown]
  - Depression [Unknown]
  - Blood uric acid decreased [Unknown]
  - Xerosis [Unknown]
  - Blood lactate dehydrogenase increased [Recovered/Resolved]
  - Alanine aminotransferase increased [Recovered/Resolved]
  - Aspartate aminotransferase increased [Recovered/Resolved]
  - Blood glucose decreased [Recovered/Resolved]
  - Lip dry [Unknown]
  - Nasal dryness [Unknown]
  - Dry eye [Unknown]
  - Myalgia [Unknown]
  - Arthralgia [Unknown]
  - Headache [Unknown]
  - Eczema [Unknown]
  - Epistaxis [Unknown]
  - Sunburn [Unknown]
  - Onychomycosis [Unknown]
